FAERS Safety Report 5198468-9 (Version None)
Quarter: 2006Q4

REPORT INFORMATION
  Report Type: 
  Country: None (occurrence: None)
  Receive Date: 20061229
  Receipt Date: 20061216
  Transmission Date: 20070319
  Serious: Yes (Hospitalization)
  Sender: FDA-Public Use
  Company Number: 2006PV027001

PATIENT
  Age: 66 Year
  Sex: Female
  Weight: 77.1115 kg

DRUGS (3)
  1. BYETTA [Suspect]
     Indication: DIABETES MELLITUS NON-INSULIN-DEPENDENT
     Dosage: 10 MCG;BID;SC; SEE IMAGE
     Route: 058
     Dates: start: 20060701, end: 20060901
  2. BYETTA [Suspect]
     Indication: DIABETES MELLITUS NON-INSULIN-DEPENDENT
     Dosage: 10 MCG;BID;SC; SEE IMAGE
     Route: 058
     Dates: start: 20060901
  3. MICRONASE [Concomitant]

REACTIONS (11)
  - ASTHENIA [None]
  - BLISTER [None]
  - FATIGUE [None]
  - HYPERSENSITIVITY [None]
  - INJECTION SITE ERYTHEMA [None]
  - INJECTION SITE PRURITUS [None]
  - INJECTION SITE RASH [None]
  - PERIPHERAL ARTERIAL OCCLUSIVE DISEASE [None]
  - RASH PRURITIC [None]
  - SENSATION OF HEAVINESS [None]
  - WEIGHT INCREASED [None]
